FAERS Safety Report 9921250 (Version 2)
Quarter: 2014Q1

REPORT INFORMATION
  Report Type: Spontaneous
  Country: GB (occurrence: GB)
  Receive Date: 20140225
  Receipt Date: 20140328
  Transmission Date: 20141002
  Serious: Yes (Death, Other)
  Sender: FDA-Public Use
  Company Number: GB-BAYER-2014-028926

PATIENT
  Age: 36 Year
  Sex: Female
  Weight: 81 kg

DRUGS (4)
  1. YASMIN ED, FILM-COATED TABLETS, 0.03 MG/3 MG [Suspect]
     Indication: CONTRACEPTION
     Dosage: 1 DF, QD
     Route: 048
     Dates: start: 2008, end: 20130513
  2. AMOXICILLIN [Concomitant]
     Indication: LOWER RESPIRATORY TRACT INFECTION
     Dosage: 500 MG, TID
     Route: 048
     Dates: start: 20130513
  3. AMOXICILLIN [Concomitant]
     Indication: LOBAR PNEUMONIA
  4. DESOGESTREL [Concomitant]
     Indication: CONTRACEPTION
     Dosage: 75 ?G, QD
     Route: 048
     Dates: start: 20130513

REACTIONS (3)
  - Pulmonary embolism [Fatal]
  - Deep vein thrombosis [Not Recovered/Not Resolved]
  - Pulmonary infarction [Not Recovered/Not Resolved]
